FAERS Safety Report 4901674-9 (Version None)
Quarter: 2006Q1

REPORT INFORMATION
  Report Type: 
  Country: None (occurrence: None)
  Receive Date: 20060202
  Receipt Date: 20060117
  Transmission Date: 20060701
  Serious: Yes (Hospitalization)
  Sender: FDA-Public Use
  Company Number: 2006-DE-00228GD

PATIENT
  Age: 61 Year
  Sex: Female

DRUGS (7)
  1. CALCIUM CARBONATE (CALCIUM CARBONATE) [Suspect]
     Dosage: 1500 MG (THRICE DAILY);  LONG TERM
  2. HYDROCHLOROTHIAZIDE [Suspect]
     Dosage: 25 MG
  3. CALCITRIOL [Suspect]
     Dosage: 0.5 MCG
  4. LEVOTHYROXINE SODIUM [Suspect]
     Dosage: 175 MCG
  5. VITAMIN D (ERGOCALICEROL) [Suspect]
     Dosage: 600 U (THRICE DAILY); LONG -TERM
  6. TUMS (CALCIUM CARBONSTE) [Suspect]
     Indication: EPIGASTRIC DISCOMFORT
     Dosage: 12 G DURING 5 DAYS, PO
     Route: 048
  7. HOME OXYGEN (OXYGEN) [Concomitant]

REACTIONS (2)
  - MILK-ALKALI SYNDROME [None]
  - SELF-MEDICATION [None]
